FAERS Safety Report 5156974-7 (Version None)
Quarter: 2006Q4

REPORT INFORMATION
  Report Type: 
  Country: None (occurrence: None)
  Receive Date: 20061124
  Receipt Date: 20061116
  Transmission Date: 20070319
  Serious: Yes (Hospitalization)
  Sender: FDA-Public Use
  Company Number: ES-ROCHE-471688

PATIENT
  Age: 19 Year
  Sex: Male

DRUGS (6)
  1. VESANOID [Suspect]
     Route: 048
     Dates: start: 20060802, end: 20060804
  2. VESANOID [Suspect]
     Route: 048
     Dates: start: 20060717, end: 20060731
  3. ZAVEDOS [Concomitant]
     Dosage: DRUG NAME REPORTED AS ZAVEDOZ, DOSAGE AS 26 MG PER CYCLE, FORM AS LYOPHILIZED VIAL.
     Route: 042
     Dates: start: 20060719, end: 20060731
  4. AMIKACINA NORMON [Concomitant]
     Dosage: FORM REPORTED AS VIAL.
     Route: 042
     Dates: start: 20060717, end: 20060815
  5. LOSEC [Concomitant]
     Dosage: FORM REPORTED AS VIAL. DRUG NAME REPORTED AS LOSEC IV INFUSION.
     Route: 042
     Dates: start: 20060717, end: 20060815
  6. ALLOPURINOL [Concomitant]
     Route: 048
     Dates: start: 20060717, end: 20060802

REACTIONS (3)
  - HYPOTENSION [None]
  - MYOCARDITIS [None]
  - TACHYCARDIA [None]
